FAERS Safety Report 12359961 (Version 1)
Quarter: 2016Q2

REPORT INFORMATION
  Report Type: Spontaneous
  Country: GB (occurrence: GB)
  Receive Date: 20160512
  Receipt Date: 20160512
  Transmission Date: 20160815
  Serious: Yes (Disabling)
  Sender: FDA-Public Use
  Company Number: GB-ROCHE-1756321

PATIENT
  Age: 64 Year
  Sex: Male
  Weight: 80 kg

DRUGS (7)
  1. ACTILYSE [Suspect]
     Active Substance: ALTEPLASE
     Indication: ISCHAEMIC STROKE
     Route: 042
     Dates: start: 20160419, end: 20160419
  2. ASPIRIN. [Concomitant]
     Active Substance: ASPIRIN
     Route: 048
  3. ATORVASTATIN [Concomitant]
     Active Substance: ATORVASTATIN
  4. EPLERENONE. [Concomitant]
     Active Substance: EPLERENONE
     Route: 048
  5. ATENOLOL. [Concomitant]
     Active Substance: ATENOLOL
     Route: 048
  6. NICORANDIL [Concomitant]
     Active Substance: NICORANDIL
     Route: 048
  7. PERINDOPRIL [Concomitant]
     Active Substance: PERINDOPRIL
     Route: 048

REACTIONS (2)
  - Haemorrhage intracranial [Unknown]
  - Thrombocytopenia [Recovered/Resolved with Sequelae]

NARRATIVE: CASE EVENT DATE: 20160419
